FAERS Safety Report 6606652-X (Version None)
Quarter: 2010Q1

REPORT INFORMATION
  Report Type: 
  Country: None (occurrence: None)
  Receive Date: 20100226
  Receipt Date: 20100218
  Transmission Date: 20100710
  Serious: Yes (Hospitalization, Other)
  Sender: FDA-Public Use
  Company Number: US-ABBOTT-10P-163-0627236-00

PATIENT
  Sex: Female
  Weight: 68.1 kg

DRUGS (4)
  1. LUPRON DEPOT [Suspect]
     Indication: ENDOMETRIOSIS
     Dates: start: 19980101
  2. LUPRON DEPOT [Suspect]
     Indication: ENDOMETRIOSIS
     Dates: start: 20090701, end: 20090901
  3. ASPIRIN [Concomitant]
     Indication: DRUG USE FOR UNKNOWN INDICATION
     Dates: start: 20100201
  4. SIMVASTATIN [Concomitant]
     Indication: ANTIINFLAMMATORY THERAPY
     Dates: start: 20100201

REACTIONS (3)
  - CEREBROVASCULAR ACCIDENT [None]
  - NERVE INJURY [None]
  - SPEECH DISORDER [None]
